FAERS Safety Report 20913002 (Version 1)
Quarter: 2022Q2

REPORT INFORMATION
  Report Type: Spontaneous
  Country: FR (occurrence: FR)
  Receive Date: 20220603
  Receipt Date: 20220603
  Transmission Date: 20220720
  Serious: Yes (Other)
  Sender: FDA-Public Use
  Company Number: None

PATIENT
  Age: 88 Year
  Sex: Male
  Weight: 69 kg

DRUGS (6)
  1. LOVENOX [Suspect]
     Active Substance: ENOXAPARIN SODIUM
     Indication: Anticoagulant therapy
     Dosage: 0.4 ML
     Route: 058
     Dates: start: 20210502, end: 20210525
  2. TOCILIZUMAB [Suspect]
     Active Substance: TOCILIZUMAB
     Indication: COVID-19
     Dosage: 8 MG/KG
     Route: 041
     Dates: start: 20210506, end: 20210506
  3. LERCANIDIPINE [Concomitant]
     Active Substance: LERCANIDIPINE
     Dosage: UNK
  4. SPIRAMYCIN [Concomitant]
     Active Substance: SPIRAMYCIN
     Dosage: UNK
     Dates: start: 20210506, end: 20210511
  5. ENALAPRIL [Concomitant]
     Active Substance: ENALAPRIL
  6. CEFOTAXIME [Concomitant]
     Active Substance: CEFOTAXIME SODIUM
     Dosage: UNK
     Dates: start: 20210506, end: 20210513

REACTIONS (1)
  - Pancytopenia [Recovered/Resolved]
